FAERS Safety Report 22174741 (Version 2)
Quarter: 2023Q2

REPORT INFORMATION
  Report Type: Report from Study
  Country: NL (occurrence: NL)
  Receive Date: 20230405
  Receipt Date: 20230429
  Transmission Date: 20230722
  Serious: Yes (Hospitalization, Other)
  Sender: FDA-Public Use
  Company Number: NL-AstraZeneca-2023A036447

PATIENT
  Age: 40 Week
  Sex: Male
  Weight: 7 kg

DRUGS (2)
  1. SYNAGIS [Suspect]
     Active Substance: PALIVIZUMAB
     Indication: Premature baby
     Dosage: FREQUENCY ONCE MONTHLY
     Route: 030
     Dates: start: 20221014
  2. FERROFUMARAAT SUSP 20MG/ML [Concomitant]
     Indication: Product used for unknown indication

REACTIONS (3)
  - Hydrocephalus [Unknown]
  - Complication associated with device [Recovered/Resolved]
  - Inappropriate schedule of product administration [Recovered/Resolved]

NARRATIVE: CASE EVENT DATE: 20230212
